FAERS Safety Report 5551606-8 (Version None)
Quarter: 2007Q4

REPORT INFORMATION
  Report Type: 
  Country: None (occurrence: None)
  Receive Date: 20071128
  Receipt Date: 20070709
  Transmission Date: 20080405
  Serious: Yes (Hospitalization, Other)
  Sender: FDA-Public Use
  Company Number: 2007057289

PATIENT
  Age: 48 Year
  Sex: Male
  Weight: 139.5 kg

DRUGS (12)
  1. LIPITOR [Suspect]
     Indication: CARDIAC DISORDER
     Dosage: 10 MG (10 MG, 1 IN 1 D)
     Dates: start: 20040101, end: 20070428
  2. METFORMIN HCL [Concomitant]
  3. PROTONIX [Concomitant]
  4. FLUOXETINE [Concomitant]
  5. NAPROXEN [Concomitant]
  6. AMOXICILLIN [Concomitant]
  7. REQUIP [Concomitant]
  8. INDERAL LA [Concomitant]
  9. WELLBUTRIN [Concomitant]
  10. FOLIC ACID [Concomitant]
  11. ACETYLSALICYLIC ACID SRT [Concomitant]
  12. CLONAZEPAM [Concomitant]

REACTIONS (2)
  - CONVULSION [None]
  - TREMOR [None]
